FAERS Safety Report 24086060 (Version 7)
Quarter: 2025Q1

REPORT INFORMATION
  Report Type: Report from Study
  Country: US (occurrence: US)
  Receive Date: 20240712
  Receipt Date: 20250219
  Transmission Date: 20250408
  Serious: Yes (Other)
  Sender: TAKEDA
  Company Number: US-TAKEDA-2024TUS068910

PATIENT
  Age: 64 Year
  Sex: Male
  Weight: 97.52 kg

DRUGS (3)
  1. FRUQUINTINIB [Suspect]
     Active Substance: FRUQUINTINIB
     Indication: Colon cancer
     Dosage: 5 MILLIGRAM, QD
  2. FRUQUINTINIB [Suspect]
     Active Substance: FRUQUINTINIB
     Dosage: 5 MILLIGRAM, QD
     Dates: start: 20240623
  3. FRUQUINTINIB [Suspect]
     Active Substance: FRUQUINTINIB

REACTIONS (19)
  - Neuropathy peripheral [Unknown]
  - Blister [Unknown]
  - Hyperaesthesia [Unknown]
  - Stomatitis [Unknown]
  - Urinary incontinence [Unknown]
  - Constipation [Unknown]
  - Hypersomnia [Unknown]
  - Urinary tract infection [Unknown]
  - Abdominal pain upper [Unknown]
  - Abdominal discomfort [Unknown]
  - Muscular weakness [Unknown]
  - Increased tendency to bruise [Unknown]
  - Mobility decreased [Unknown]
  - Dysuria [Unknown]
  - Amnesia [Unknown]
  - Back pain [Unknown]
  - Dysphonia [Unknown]
  - Weight decreased [Unknown]
  - Fatigue [Unknown]

NARRATIVE: CASE EVENT DATE: 20240627
